FAERS Safety Report 18318606 (Version 2)
Quarter: 2020Q4

REPORT INFORMATION
  Report Type: Spontaneous
  Country: US (occurrence: US)
  Receive Date: 20200928
  Receipt Date: 20201001
  Transmission Date: 20210113
  Serious: No
  Sender: FDA-Public Use
  Company Number: US-JNJFOC-20200944515

PATIENT
  Sex: Male

DRUGS (1)
  1. SIMPONI [Suspect]
     Active Substance: GOLIMUMAB
     Indication: PRODUCT USED FOR UNKNOWN INDICATION
     Route: 058
     Dates: start: 202004, end: 202008

REACTIONS (1)
  - Drug ineffective [Unknown]
